FAERS Safety Report 11446242 (Version 1)
Quarter: 2015Q3

REPORT INFORMATION
  Report Type: Spontaneous
  Country: US (occurrence: US)
  Receive Date: 20150902
  Receipt Date: 20150902
  Transmission Date: 20151125
  Serious: No
  Sender: FDA-Public Use
  Company Number: US-BAYER-2015-414050

PATIENT
  Age: 73 Year
  Sex: Female
  Weight: 73.92 kg

DRUGS (4)
  1. LOSARTAN. [Concomitant]
     Active Substance: LOSARTAN
     Dosage: UNK
  2. AMLODIPINE [Concomitant]
     Active Substance: AMLODIPINE BESYLATE
     Dosage: UNK
  3. LISINOPRIL. [Concomitant]
     Active Substance: LISINOPRIL
     Dosage: UNK
  4. OXYTROL FOR WOMEN [Suspect]
     Active Substance: OXYBUTYNIN
     Indication: HYPERTONIC BLADDER
     Dosage: 1 DF, EVERY 4 DAYS
     Route: 061
     Dates: start: 201505, end: 20150901

REACTIONS (1)
  - Application site rash [Recovered/Resolved]

NARRATIVE: CASE EVENT DATE: 20150825
